FAERS Safety Report 20841892 (Version 1)
Quarter: 2022Q2

REPORT INFORMATION
  Report Type: Other
  Country: US (occurrence: None)
  Receive Date: 20220518
  Receipt Date: 20220518
  Transmission Date: 20220721
  Serious: No
  Sender: FDA-Public Use
  Company Number: US-ROCHE-3028145

PATIENT
  Age: 35 Day
  Sex: Female

DRUGS (5)
  1. VALGANCICLOVIR [Suspect]
     Active Substance: VALGANCICLOVIR
     Indication: Meningitis viral
     Route: 048
  2. VANCOMYCIN [Concomitant]
     Active Substance: VANCOMYCIN
     Dosage: FOR 5 DAYS
  3. CEFEPIME [Concomitant]
     Active Substance: CEFEPIME HYDROCHLORIDE
     Dosage: FOR 5 DAYS
  4. GANCICLOVIR [Concomitant]
     Active Substance: GANCICLOVIR
     Route: 042
  5. FOSCARNET [Concomitant]
     Active Substance: FOSCARNET

REACTIONS (2)
  - Off label use [Unknown]
  - No adverse event [Unknown]
